FAERS Safety Report 9815336 (Version 1)
Quarter: 2014Q1

REPORT INFORMATION
  Report Type: Spontaneous
  Country: GB (occurrence: GB)
  Receive Date: 20140114
  Receipt Date: 20140114
  Transmission Date: 20141002
  Serious: Yes (Other)
  Sender: FDA-Public Use
  Company Number: GB-RANBAXY-2013R1-76843

PATIENT
  Age: 12 Month
  Sex: Male
  Weight: 10.6 kg

DRUGS (8)
  1. AMOXICILLIN [Suspect]
     Indication: OTITIS MEDIA
     Dosage: UNK
     Route: 065
     Dates: start: 20130930, end: 20131007
  2. AMOXICILLIN [Suspect]
     Indication: OTITIS MEDIA
     Dosage: UNK
     Route: 065
     Dates: start: 20131217
  3. AMOXICILLIN [Suspect]
     Indication: PRODUCT USED FOR UNKNOWN INDICATION
     Dosage: UNK
     Route: 065
     Dates: start: 20131218
  4. AMOXICILLIN [Suspect]
     Dates: start: 20130930, end: 20131007
  5. AMOXICILLIN [Suspect]
     Dates: start: 20131217
  6. CHLORAMPHENICOL [Concomitant]
     Indication: PRODUCT USED FOR UNKNOWN INDICATION
     Route: 065
     Dates: start: 20130930, end: 20131005
  7. CHLORPHENAMINE [Concomitant]
     Indication: PRODUCT USED FOR UNKNOWN INDICATION
     Route: 065
     Dates: start: 20131218
  8. IBUPROFEN [Concomitant]
     Indication: PRODUCT USED FOR UNKNOWN INDICATION
     Dosage: UNK
     Route: 065
     Dates: start: 20130930, end: 20131005

REACTIONS (1)
  - Drug eruption [Unknown]
